FAERS Safety Report 21631485 (Version 2)
Quarter: 2022Q4

REPORT INFORMATION
  Report Type: Spontaneous
  Country: FR (occurrence: FR)
  Receive Date: 20221123
  Receipt Date: 20221125
  Transmission Date: 20230113
  Serious: No
  Sender: FDA-Public Use
  Company Number: FR-SANOFI-01033539

PATIENT
  Age: 72 Year
  Sex: Male

DRUGS (3)
  1. TERALITHE [Suspect]
     Active Substance: LITHIUM CARBONATE
     Dosage: PROLONGED-RELEASE SCORED TABLET
  2. RISPERIDONE [Suspect]
     Active Substance: RISPERIDONE
  3. PROZAC [Concomitant]
     Active Substance: FLUOXETINE HYDROCHLORIDE

REACTIONS (1)
  - Drug ineffective [Unknown]
